FAERS Safety Report 16492017 (Version 1)
Quarter: 2019Q2

REPORT INFORMATION
  Report Type: Spontaneous
  Country: IT (occurrence: IT)
  Receive Date: 20190628
  Receipt Date: 20190628
  Transmission Date: 20190711
  Serious: Yes (Hospitalization)
  Sender: FDA-Public Use
  Company Number: IT-ROCHE-2343940

PATIENT
  Age: 49 Year
  Sex: Female

DRUGS (3)
  1. CAPECITABINE. [Suspect]
     Active Substance: CAPECITABINE
     Indication: PRODUCT USED FOR UNKNOWN INDICATION
     Dosage: MOST RECENT DOSE ON 05/MAR/2019.
     Route: 048
     Dates: start: 20190122
  2. CISPLATIN. [Suspect]
     Active Substance: CISPLATIN
     Indication: GASTRIC CANCER STAGE IV
     Dosage: MOST RECENT DOSE ON 05/MAR/2019.
     Route: 042
     Dates: start: 20190122
  3. HERCEPTIN [Suspect]
     Active Substance: TRASTUZUMAB
     Indication: GASTRIC CANCER STAGE IV
     Dosage: MOST RECENT DOSE ON 05/MAR/2019.
     Route: 042
     Dates: start: 20190122

REACTIONS (2)
  - Pulmonary embolism [Recovered/Resolved]
  - Embolism venous [Recovered/Resolved]

NARRATIVE: CASE EVENT DATE: 20190329
